FAERS Safety Report 5666569-4 (Version None)
Quarter: 2008Q1

REPORT INFORMATION
  Report Type: 
  Country: None (occurrence: None)
  Receive Date: 20080315
  Receipt Date: 20071212
  Transmission Date: 20080703
  Serious: No
  Sender: FDA-Public Use
  Company Number: US-ABBOTT-07P-163-0430965-00

PATIENT
  Sex: Female
  Weight: 98.9 kg

DRUGS (24)
  1. HUMIRA [Suspect]
     Indication: CROHN'S DISEASE
     Route: 058
     Dates: start: 20070822
  2. GRIFULIUNV [Concomitant]
     Indication: ALOPECIA
     Route: 048
  3. FULFASALAZIN [Concomitant]
     Indication: ARTHRITIS
     Route: 048
  4. ATORVASTATIN CALCIUM [Concomitant]
     Indication: BLOOD CHOLESTEROL INCREASED
     Route: 048
  5. DILTIAZEM [Concomitant]
     Indication: HYPERTENSION
     Route: 048
  6. MONTELUKAST SODIUM [Concomitant]
     Indication: ASTHMA
     Route: 048
  7. PLAXIL [Concomitant]
     Indication: ANXIOLYTIC THERAPY
     Route: 048
  8. ALTAZE [Concomitant]
     Indication: HYPERTENSION
     Route: 048
  9. CHROMAGEN [Concomitant]
     Indication: ANAEMIA
     Route: 048
  10. KLOR-CON [Concomitant]
     Indication: BLOOD POTASSIUM ABNORMAL
     Route: 048
  11. HYDROCHLOROTHIAZIDE [Concomitant]
     Indication: HYPERTENSION
     Route: 048
  12. FUROSEMIDE [Concomitant]
     Indication: HYPERTENSION
     Route: 048
  13. PROPACET 100 [Concomitant]
     Indication: PAIN
     Route: 048
  14. BIOTIN FORTE [Concomitant]
     Indication: ALOPECIA
     Route: 048
  15. CENTRUM SILVER [Concomitant]
     Indication: CROHN'S DISEASE
     Route: 048
  16. ASCORBIC ACID [Concomitant]
     Indication: PROPHYLAXIS
     Route: 048
  17. ASCORBIC ACID [Concomitant]
     Indication: NASOPHARYNGITIS
  18. CINNAMOMUM VERUM [Concomitant]
     Indication: BLOOD GLUCOSE ABNORMAL
     Route: 048
  19. CALCIUM CITRATE PLUS D [Concomitant]
     Indication: PROPHYLAXIS
     Route: 048
  20. CALCIUM CITRATE PLUS D [Concomitant]
     Indication: OSTEOPOROSIS
  21. FISH OIL [Concomitant]
     Indication: CROHN'S DISEASE
     Route: 048
  22. GLUCOSAMINE-CHONDROITIN [Concomitant]
     Indication: ARTHROPATHY
     Route: 048
  23. ZINGIBER OFFICINALE RHIZOME [Concomitant]
     Indication: DYSPEPSIA
     Route: 048
  24. TYLENOL [Concomitant]
     Indication: SLEEP DISORDER THERAPY
     Route: 048

REACTIONS (2)
  - NASOPHARYNGITIS [None]
  - PYREXIA [None]
